FAERS Safety Report 7141123-6 (Version None)
Quarter: 2010Q4

REPORT INFORMATION
  Report Type: 
  Country: None (occurrence: None)
  Receive Date: 20101207
  Receipt Date: 20101123
  Transmission Date: 20110411
  Serious: Yes (Hospitalization)
  Sender: FDA-Public Use
  Company Number: DE-RANBAXY-2009RR-20452

PATIENT
  Age: 63 Year
  Sex: Male
  Weight: 80 kg

DRUGS (5)
  1. SIMVASTATIN [Suspect]
     Indication: CAROTID ARTERY STENOSIS
     Dosage: 20 MG, QD
     Route: 048
     Dates: start: 20080519, end: 20081014
  2. INSIDON CIBA-GEIGY [Suspect]
     Indication: GENERALISED ANXIETY DISORDER
     Dosage: 50 MG, QD
     Route: 048
     Dates: start: 20070901, end: 20081014
  3. JOHANNISKRAUT-KAPSELN CT [Suspect]
     Indication: GENERALISED ANXIETY DISORDER
     Dosage: 300 MG, BID
     Route: 048
     Dates: start: 20080911, end: 20081014
  4. ASS 100 [Suspect]
     Indication: CAROTID ARTERY STENOSIS
     Dosage: 100 MG, QD
     Route: 048
     Dates: start: 20080519, end: 20081010
  5. BISOPROLOL [Concomitant]
     Indication: HYPERTENSION
     Dosage: 2.5 MG, QD
     Route: 048
     Dates: start: 20060901

REACTIONS (2)
  - DRUG INTERACTION [None]
  - HEPATIC ENZYME INCREASED [None]
